FAERS Safety Report 13943875 (Version 1)
Quarter: 2017Q3

REPORT INFORMATION
  Report Type: Spontaneous
  Country: US (occurrence: US)
  Receive Date: 20170907
  Receipt Date: 20170907
  Transmission Date: 20171128
  Serious: No
  Sender: FDA-Public Use
  Company Number: US-ROCHE-1448739

PATIENT
  Sex: Male

DRUGS (3)
  1. PREDNISONE. [Concomitant]
     Active Substance: PREDNISONE
     Indication: FACTOR VIII DEFICIENCY
     Dosage: HISH DOSE PREDNISONE TAPER
     Route: 065
  2. CYTOXAN [Concomitant]
     Active Substance: CYCLOPHOSPHAMIDE
     Indication: FACTOR VIII DEFICIENCY
  3. RITUXAN [Suspect]
     Active Substance: RITUXIMAB
     Indication: FACTOR VIII DEFICIENCY
     Dosage: 4 DOSES
     Route: 042

REACTIONS (4)
  - Dizziness [Recovered/Resolved]
  - Nervous system disorder [Recovered/Resolved]
  - Neutropenia [Recovered/Resolved]
  - White blood cell count decreased [Unknown]
